FAERS Safety Report 8920566 (Version 1)
Quarter: 2012Q4

REPORT INFORMATION
  Report Type: 
  Country: IT (occurrence: IT)
  Receive Date: 20121122
  Receipt Date: 20121122
  Transmission Date: 20130627
  Serious: Yes (Hospitalization)
  Sender: FDA-Public Use
  Company Number: IT-PFIZER INC-2012282549

PATIENT
  Sex: Female

DRUGS (4)
  1. CISPLATINO [Suspect]
     Indication: OVARIAN CANCER RECURRENT
     Dosage: 73 mg, cyclic
     Route: 041
     Dates: start: 20120925, end: 20121019
  2. RANIDIL [Concomitant]
     Dosage: 50 mg/5 ml (10 mg/ml)
     Dates: start: 20120925, end: 20121019
  3. SOLDESAM [Concomitant]
     Dosage: 8 mg/2 ml (4 mg/ml)
     Dates: start: 20120925, end: 20121019
  4. NAVOBAN [Concomitant]
     Dosage: 5 mg, UNK
     Dates: start: 20120925, end: 20121019

REACTIONS (3)
  - Dyspnoea [Recovered/Resolved]
  - Erythema [Recovered/Resolved]
  - Feeling hot [Recovered/Resolved]
